FAERS Safety Report 23250488 (Version 1)
Quarter: 2023Q4

REPORT INFORMATION
  Report Type: Spontaneous
  Country: CN (occurrence: CN)
  Receive Date: 20231201
  Receipt Date: 20231201
  Transmission Date: 20240109
  Serious: Yes (Other)
  Sender: FDA-Public Use
  Company Number: CN-MYLANLABS-2023M1126617

PATIENT
  Age: 24 Year
  Sex: Female

DRUGS (2)
  1. ZOLOFT [Suspect]
     Active Substance: SERTRALINE HYDROCHLORIDE
     Indication: Product used for unknown indication
     Dosage: 10 DOSAGE FORM, QD
     Route: 048
     Dates: start: 20231022, end: 20231022
  2. OXAZEPAM HEMISUCCINATE [Suspect]
     Active Substance: OXAZEPAM HEMISUCCINATE
     Indication: Product used for unknown indication
     Dosage: 14 DOSAGE FORM, QD
     Route: 048
     Dates: start: 20231022, end: 20231022

REACTIONS (1)
  - Toxicity to various agents [Recovering/Resolving]

NARRATIVE: CASE EVENT DATE: 20231022
